FAERS Safety Report 9385075 (Version 1)
Quarter: 2013Q3

REPORT INFORMATION
  Report Type: Spontaneous
  Country: US (occurrence: US)
  Receive Date: 20130705
  Receipt Date: 20130705
  Transmission Date: 20140515
  Serious: Yes (Hospitalization)
  Sender: FDA-Public Use
  Company Number: US-NOVOPROD-381732

PATIENT
  Age: 62 Year
  Sex: Male

DRUGS (9)
  1. VICTOZA [Suspect]
     Indication: TYPE 2 DIABETES MELLITUS
     Route: 058
     Dates: start: 201208, end: 20130622
  2. LANTUS [Concomitant]
     Indication: TYPE 2 DIABETES MELLITUS
     Route: 058
  3. ALLOPURINOL [Concomitant]
     Indication: GOUT
  4. SOMA [Concomitant]
     Indication: PRODUCT USED FOR UNKNOWN INDICATION
  5. VENLAFAXINE [Concomitant]
     Indication: DEPRESSION
  6. PROSCAR [Concomitant]
     Indication: PROSTATOMEGALY
  7. LISINOPRIL [Concomitant]
     Indication: HYPERTENSION
  8. CARVEDILOL [Concomitant]
     Indication: CARDIAC FAILURE CONGESTIVE
  9. LIPITOR [Concomitant]
     Indication: BLOOD CHOLESTEROL INCREASED

REACTIONS (4)
  - Hypertension [Recovered/Resolved]
  - Headache [Recovered/Resolved]
  - Pain in jaw [Recovered/Resolved]
  - Nausea [Recovered/Resolved]
